FAERS Safety Report 5372811-X (Version None)
Quarter: 2007Q2

REPORT INFORMATION
  Report Type: 
  Country: None (occurrence: None)
  Receive Date: 20070627
  Receipt Date: 20070619
  Transmission Date: 20071010
  Serious: Yes (Other)
  Sender: FDA-Public Use
  Company Number: JP-PFIZER INC-2007048901

PATIENT
  Age: 88 Year
  Sex: Female

DRUGS (11)
  1. ALDACTONE [Suspect]
     Dosage: DAILY DOSE:12.5MG
     Route: 048
  2. DIOVAN [Concomitant]
     Route: 048
  3. ZESTRIL [Concomitant]
     Route: 048
  4. TAKEPRON [Concomitant]
  5. SOTALOL HCL [Concomitant]
     Route: 048
  6. ASPARA K [Concomitant]
     Route: 048
  7. URSO 250 [Concomitant]
     Route: 048
  8. PROHEPARUM [Concomitant]
     Route: 048
  9. DAI-KENCHU-TO [Concomitant]
     Route: 048
  10. CARVISKEN [Concomitant]
     Route: 048
  11. ALDOMET [Concomitant]
     Route: 048

REACTIONS (2)
  - CONDITION AGGRAVATED [None]
  - PLATELET COUNT DECREASED [None]
